FAERS Safety Report 6354167-9 (Version None)
Quarter: 2009Q3

REPORT INFORMATION
  Report Type: 
  Country: None (occurrence: None)
  Receive Date: 20090914
  Receipt Date: 20090901
  Transmission Date: 20100115
  Serious: Yes (Life-Threatening, Hospitalization)
  Sender: FDA-Public Use
  Company Number: FR-ROCHE-653626

PATIENT
  Sex: Male

DRUGS (7)
  1. CELLCEPT [Suspect]
     Indication: IDIOPATHIC THROMBOCYTOPENIC PURPURA
     Route: 048
     Dates: start: 20070101, end: 20090128
  2. CARDENSIEL [Suspect]
     Indication: DRUG USE FOR UNKNOWN INDICATION
     Dosage: DOSE: 1 (NO UNIT), DAILY DOSE
     Route: 048
  3. CARDENSIEL [Suspect]
     Dosage: THERAPY WITH REDUCED DOSAGE
     Route: 048
     Dates: end: 20090306
  4. LASILIX FAIBLE [Concomitant]
     Dosage: DAILY DOSE, DOSE: 1 (NO UNIT)
  5. PREVISCAN [Concomitant]
     Dosage: DAILY DOSE,, DOSE: 0.5 (NO UNIT)
     Dates: end: 20090228
  6. INEXIUM [Concomitant]
     Dosage: DAILY DOSE, DOSE: 1 (NO UNIT)
     Route: 048
  7. CRESTOR [Concomitant]
     Dosage: DAILY DOSE, DOSE: 1 (NO UNIT)
     Route: 048
     Dates: end: 20090227

REACTIONS (1)
  - INTERSTITIAL LUNG DISEASE [None]
